FAERS Safety Report 5729883-X (Version None)
Quarter: 2008Q2

REPORT INFORMATION
  Report Type: 
  Country: None (occurrence: None)
  Receive Date: 20080502
  Receipt Date: 20080421
  Transmission Date: 20081010
  Serious: Yes (Hospitalization)
  Sender: FDA-Public Use
  Company Number: SPV1-2008-00883

PATIENT
  Age: 17 Year
  Sex: Male

DRUGS (3)
  1. ADDERALL XR 30 [Suspect]
     Indication: ATTENTION DEFICIT/HYPERACTIVITY DISORDER
     Dosage: 20 MG, 1X/DAY;QD, ORAL
     Route: 048
  2. BUPROPION HCL [Suspect]
     Indication: AFFECTIVE DISORDER
     Dosage: 150 MG, 2X/DAY;BID, ORAL
     Route: 048
  3. VALPROIC ACID [Concomitant]

REACTIONS (3)
  - ABNORMAL BEHAVIOUR [None]
  - NIGHT SWEATS [None]
  - SLEEP TERROR [None]
